FAERS Safety Report 18772389 (Version 2)
Quarter: 2021Q1

REPORT INFORMATION
  Report Type: Report from Study
  Country: US (occurrence: US)
  Receive Date: 20210122
  Receipt Date: 20210326
  Transmission Date: 20210419
  Serious: Yes (Other)
  Sender: FDA-Public Use
  Company Number: PHHY2019US052184

PATIENT
  Age: 51 Year
  Sex: Female
  Weight: 91.8 kg

DRUGS (16)
  1. GSK2118436 [Suspect]
     Active Substance: DABRAFENIB
     Indication: METASTATIC MALIGNANT MELANOMA
     Dosage: 150 OT
     Route: 048
     Dates: start: 20180604, end: 20180807
  2. GSK2118436 [Suspect]
     Active Substance: DABRAFENIB
     Dosage: 150 OT
     Route: 048
     Dates: start: 20180806, end: 20180924
  3. GSK2118436 [Suspect]
     Active Substance: DABRAFENIB
     Dosage: 150 OT
     Route: 048
     Dates: start: 20190114, end: 20190311
  4. GSK2118436 [Suspect]
     Active Substance: DABRAFENIB
     Dosage: 150 OT
     Route: 048
     Dates: start: 20190311, end: 20190506
  5. GSK2118436 [Suspect]
     Active Substance: DABRAFENIB
     Dosage: 150 OT
     Route: 048
     Dates: start: 20191021, end: 20200210
  6. GSK2118436 [Suspect]
     Active Substance: DABRAFENIB
     Dosage: 150 OT
     Route: 048
     Dates: start: 20201116, end: 20210111
  7. GSK2118436 [Suspect]
     Active Substance: DABRAFENIB
     Dosage: 150 OT
     Route: 048
     Dates: start: 20180924, end: 20181119
  8. GSK2118436 [Suspect]
     Active Substance: DABRAFENIB
     Dosage: 150 OT
     Route: 048
     Dates: start: 20200921, end: 20201116
  9. GSK2118436 [Suspect]
     Active Substance: DABRAFENIB
     Dosage: 150 OT
     Route: 048
     Dates: start: 20200210, end: 20200601
  10. GSK2118436 [Suspect]
     Active Substance: DABRAFENIB
     Dosage: 150 OT
     Route: 048
     Dates: start: 20200601, end: 20200727
  11. GSK2118436 [Suspect]
     Active Substance: DABRAFENIB
     Dosage: 150 OT
     Route: 048
     Dates: start: 20190828, end: 20191021
  12. GSK2118436 [Suspect]
     Active Substance: DABRAFENIB
     Dosage: 150 OT
     Route: 048
     Dates: start: 20181119, end: 20190114
  13. GSK2118436 [Suspect]
     Active Substance: DABRAFENIB
     Dosage: 150 OT
     Route: 048
     Dates: start: 20190701, end: 20190828
  14. GSK2118436 [Suspect]
     Active Substance: DABRAFENIB
     Dosage: 150 OT
     Route: 048
     Dates: start: 20200727, end: 20200921
  15. GSK2118436 [Suspect]
     Active Substance: DABRAFENIB
     Dosage: 150 OT
     Route: 048
     Dates: start: 20210111, end: 20210317
  16. GSK2118436 [Suspect]
     Active Substance: DABRAFENIB
     Dosage: 150 OT
     Route: 048
     Dates: start: 20190515, end: 20190701

REACTIONS (18)
  - COVID-19 [Recovered/Resolved]
  - Productive cough [Recovered/Resolved]
  - Myalgia [Recovered/Resolved]
  - Anosmia [Recovered/Resolved]
  - Tendon neoplasm [Not Recovered/Not Resolved]
  - Lymphopenia [Unknown]
  - Cough [Recovered/Resolved]
  - Fatigue [Recovered/Resolved]
  - Ageusia [Recovered/Resolved]
  - Abdominal pain [Recovered/Resolved]
  - Abdominal pain [Recovered/Resolved]
  - Productive cough [Recovered/Resolved]
  - Myalgia [Recovered/Resolved]
  - Skin hypertrophy [Not Recovered/Not Resolved]
  - Ear pain [Recovered/Resolved]
  - Headache [Recovered/Resolved]
  - Rhinorrhoea [Recovered/Resolved]
  - Skin lesion [Recovered/Resolved]

NARRATIVE: CASE EVENT DATE: 20181220
